FAERS Safety Report 6713698-X (Version None)
Quarter: 2010Q2

REPORT INFORMATION
  Report Type: 
  Country: None (occurrence: None)
  Receive Date: 20100506
  Receipt Date: 20100426
  Transmission Date: 20101027
  Serious: Yes (Life-Threatening)
  Sender: FDA-Public Use
  Company Number: JP-PFIZER INC-2010045776

PATIENT
  Age: 57 Year
  Sex: Male
  Weight: 70 kg

DRUGS (3)
  1. LIPITOR [Suspect]
     Dosage: 5 MG UID/1X/DAY
     Route: 048
     Dates: start: 20081011, end: 20081219
  2. LIPITOR [Suspect]
     Dosage: 10 MG DAILY
     Route: 048
     Dates: start: 20081220, end: 20091002
  3. LIPITOR [Suspect]
     Dosage: 5 MG, UID/1X/DAY
     Route: 048
     Dates: start: 20091003, end: 20100405

REACTIONS (1)
  - HEPATITIS FULMINANT [None]
